FAERS Safety Report 21337329 (Version 1)
Quarter: 2022Q3

REPORT INFORMATION
  Report Type: Spontaneous
  Country: US (occurrence: US)
  Receive Date: 20220915
  Receipt Date: 20220915
  Transmission Date: 20221027
  Serious: Yes (Life-Threatening)
  Sender: FDA-Public Use
  Company Number: US-BAYER-2022P014121

PATIENT
  Age: 65 Year
  Sex: Female

DRUGS (3)
  1. GENUINE BAYER ASPIRIN [Interacting]
     Active Substance: ASPIRIN
     Indication: Antiplatelet therapy
     Dosage: 325 MG
  2. CLOPIDOGREL [Interacting]
     Active Substance: CLOPIDOGREL BISULFATE
     Indication: Antiplatelet therapy
     Dosage: 75 MG
  3. HEPARIN [Interacting]
     Active Substance: HEPARIN SODIUM
     Dosage: 4000 U

REACTIONS (3)
  - Haematoma [Recovering/Resolving]
  - Pharyngeal haemorrhage [Recovering/Resolving]
  - Labelled drug-drug interaction medication error [None]
